FAERS Safety Report 11372021 (Version 1)
Quarter: 2015Q3

REPORT INFORMATION
  Report Type: Spontaneous
  Country: US (occurrence: US)
  Receive Date: 20150812
  Receipt Date: 20150812
  Transmission Date: 20151125
  Serious: Yes (Hospitalization)
  Sender: FDA-Public Use
  Company Number: US-JNJFOC-20150721847

PATIENT
  Age: 82 Year
  Sex: Female
  Weight: 52 kg

DRUGS (16)
  1. CAPSAICIN. [Concomitant]
     Active Substance: CAPSAICIN
     Route: 061
  2. LORAZEPAM. [Concomitant]
     Active Substance: LORAZEPAM
     Indication: INSOMNIA
     Dosage: 0.5 MG BID, PRN
     Route: 048
  3. NASONEX [Concomitant]
     Active Substance: MOMETASONE FUROATE
     Dosage: TWO SPRAYS
     Route: 045
  4. IMBRUVICA [Suspect]
     Active Substance: IBRUTINIB
     Indication: MANTLE CELL LYMPHOMA
     Route: 048
     Dates: start: 20140117
  5. ACYCLOVIR. [Concomitant]
     Active Substance: ACYCLOVIR
     Route: 048
  6. ALLOPURINOL. [Concomitant]
     Active Substance: ALLOPURINOL
     Route: 048
  7. AUGMENTIN [Concomitant]
     Active Substance: AMOXICILLIN\CLAVULANATE POTASSIUM
     Indication: BODY TEMPERATURE INCREASED
     Dosage: 875-125 MG
     Route: 048
  8. IBUPROFEN. [Concomitant]
     Active Substance: IBUPROFEN
     Indication: PAIN
     Dosage: EVERY 8 HOURS, AS NEEDED
     Route: 048
  9. OMEPRAZOLE. [Concomitant]
     Active Substance: OMEPRAZOLE
     Route: 048
  10. PROCHLORPERAZINE MALEATE. [Concomitant]
     Active Substance: PROCHLORPERAZINE MALEATE
     Indication: NAUSEA
     Dosage: EVERY SIX HOURS, PRN
     Route: 048
  11. VITAMIN B12 AND FOLIC ACID [Concomitant]
     Dosage: 500-400 MCG
     Route: 048
  12. VITAMIN D2 [Concomitant]
     Active Substance: ERGOCALCIFEROL
     Dosage: 50000 UNIT, EVERY 7 DAYS
     Route: 048
  13. TYLENOL EXTRA STRENGTH [Concomitant]
     Active Substance: ACETAMINOPHEN
  14. MAGNESIUM OXIDE. [Concomitant]
     Active Substance: MAGNESIUM OXIDE
     Route: 048
  15. LORAZEPAM. [Concomitant]
     Active Substance: LORAZEPAM
     Indication: ANXIETY
     Dosage: 0.5 MG BID, PRN
     Route: 048
  16. RANITIDINE HYDROCHLORIDE. [Concomitant]
     Active Substance: RANITIDINE HYDROCHLORIDE
     Dosage: Q PM
     Route: 048

REACTIONS (11)
  - Abdominal pain [Recovering/Resolving]
  - Asthenia [Unknown]
  - Joint effusion [Recovering/Resolving]
  - Leukocytosis [Recovered/Resolved]
  - Arthralgia [Recovering/Resolving]
  - Generalised oedema [Unknown]
  - Pyrexia [Recovered/Resolved]
  - Asthenia [Not Recovered/Not Resolved]
  - Sepsis [Recovering/Resolving]
  - Back pain [Recovering/Resolving]
  - Deep vein thrombosis [Not Recovered/Not Resolved]

NARRATIVE: CASE EVENT DATE: 201507
